FAERS Safety Report 9144155 (Version 1)
Quarter: 2013Q1

REPORT INFORMATION
  Report Type: Spontaneous
  Country: US (occurrence: US)
  Receive Date: 20130306
  Receipt Date: 20130306
  Transmission Date: 20140127
  Serious: Yes (Hospitalization)
  Sender: FDA-Public Use
  Company Number: US-AMGEN-USASP2013003120

PATIENT
  Age: 84 Year
  Sex: Male
  Weight: 89.8 kg

DRUGS (2)
  1. ARANESP [Suspect]
     Indication: RENAL FAILURE CHRONIC
     Dosage: 100 MG, QMO
     Route: 058
     Dates: start: 201210, end: 201301
  2. KEPPRA [Concomitant]
     Route: 042

REACTIONS (1)
  - Status epilepticus [Not Recovered/Not Resolved]
